FAERS Safety Report 17097451 (Version 1)
Quarter: 2019Q4

REPORT INFORMATION
  Report Type: Spontaneous
  Country: US (occurrence: US)
  Receive Date: 20191105
  Receipt Date: 20191105
  Transmission Date: 20200122
  Serious: Yes (Other)
  Sender: FDA-Public Use
  Company Number: None

PATIENT
  Age: 61 Year
  Sex: Female
  Weight: 104.33 kg

DRUGS (4)
  1. SILODOSIN 8MG CAPSULE [Suspect]
     Active Substance: SILODOSIN
     Indication: POLLAKIURIA
     Route: 048
     Dates: start: 20190419, end: 20190429
  2. CLONAZEPAIN [Concomitant]
  3. FLONASE SENSOMIST [Concomitant]
  4. RESTASIS [Concomitant]
     Active Substance: CYCLOSPORINE

REACTIONS (1)
  - Hypersensitivity [None]

NARRATIVE: CASE EVENT DATE: 20190419
